FAERS Safety Report 6392280-0 (Version None)
Quarter: 2009Q4

REPORT INFORMATION
  Report Type: 
  Country: None (occurrence: None)
  Receive Date: 20091007
  Receipt Date: 20090924
  Transmission Date: 20100525
  Serious: Yes (Other)
  Sender: FDA-Public Use
  Company Number: JP-PFIZER INC-2009276133

PATIENT

DRUGS (3)
  1. SOLANAX [Suspect]
     Indication: PANIC DISORDER
     Dosage: UNK
     Route: 048
  2. ATARAX [Concomitant]
     Route: 048
  3. METHYCOBAL [Concomitant]
     Route: 048

REACTIONS (1)
  - DEAFNESS NEUROSENSORY [None]
